FAERS Safety Report 6405900-9 (Version None)
Quarter: 2009Q4

REPORT INFORMATION
  Report Type: 
  Country: None (occurrence: None)
  Receive Date: 20091016
  Receipt Date: 20091016
  Transmission Date: 20100525
  Serious: Yes (Other)
  Sender: FDA-Public Use
  Company Number: None

PATIENT
  Sex: Male
  Weight: 111.1313 kg

DRUGS (2)
  1. CIMZIA [Suspect]
     Indication: RHEUMATOID ARTHRITIS
     Dosage: 400 MG EVERY 2 WEEKS SQ SC INJECTION 400 MG EVERY 4 WEEKS SQ SC INJECTION
     Route: 058
     Dates: start: 20090820, end: 20090820
  2. CIMZIA [Suspect]
     Indication: RHEUMATOID ARTHRITIS
     Dosage: 400 MG EVERY 2 WEEKS SQ SC INJECTION 400 MG EVERY 4 WEEKS SQ SC INJECTION
     Route: 058
     Dates: start: 20090903, end: 20090903

REACTIONS (2)
  - OEDEMA PERIPHERAL [None]
  - RASH [None]
